FAERS Safety Report 20993540 (Version 1)
Quarter: 2022Q2

REPORT INFORMATION
  Report Type: Spontaneous
  Country: US (occurrence: None)
  Receive Date: 20220621
  Receipt Date: 20220621
  Transmission Date: 20220721
  Serious: Yes (Other)
  Sender: FDA-Public Use
  Company Number: None

PATIENT
  Age: 55 Year
  Sex: Female
  Weight: 102.6 kg

DRUGS (8)
  1. BENZONATATE [Suspect]
     Active Substance: BENZONATATE
     Indication: Sinusitis
     Dosage: OTHER QUANTITY : 20 CAPSULE(S);?FREQUENCY : 3 TIMES A DAY;?
     Route: 048
     Dates: start: 20220616, end: 20220617
  2. BENZONATATE [Suspect]
     Active Substance: BENZONATATE
     Indication: Productive cough
  3. LEVOTHYROXINE [Concomitant]
     Active Substance: LEVOTHYROXINE
  4. LIOTHYRONINE [Concomitant]
     Active Substance: LIOTHYRONINE
  5. ESTRADIOL [Concomitant]
     Active Substance: ESTRADIOL
  6. multiviatmin [Concomitant]
  7. VITAMIN C [Concomitant]
     Active Substance: ASCORBIC ACID
  8. VITAMIN D3 [Concomitant]
     Active Substance: CHOLECALCIFEROL

REACTIONS (6)
  - Eye irritation [None]
  - Conjunctivitis [None]
  - Skin burning sensation [None]
  - Eye discharge [None]
  - Visual impairment [None]
  - Eye discharge [None]

NARRATIVE: CASE EVENT DATE: 20220617
